FAERS Safety Report 16893680 (Version 2)
Quarter: 2019Q4

REPORT INFORMATION
  Report Type: Spontaneous
  Country: JP (occurrence: JP)
  Receive Date: 20191008
  Receipt Date: 20191028
  Transmission Date: 20200122
  Serious: Yes (Hospitalization, Other)
  Sender: FDA-Public Use
  Company Number: JP-PFIZER INC-2019422682

PATIENT
  Age: 85 Year
  Sex: Female

DRUGS (1)
  1. METOLATE [Suspect]
     Active Substance: METHOTREXATE
     Indication: RHEUMATIC DISORDER
     Dosage: 6 MG, WEEKLY
     Route: 048

REACTIONS (14)
  - Pleural effusion [Unknown]
  - Ascites [Unknown]
  - Oedema peripheral [Unknown]
  - Loss of personal independence in daily activities [Unknown]
  - C-reactive protein increased [Unknown]
  - Gamma-glutamyltransferase increased [Unknown]
  - Pancytopenia [Unknown]
  - Diarrhoea [Unknown]
  - White blood cell count decreased [Unknown]
  - Platelet count decreased [Unknown]
  - Haemoglobin decreased [Unknown]
  - Blood albumin decreased [Unknown]
  - Hypophagia [Unknown]
  - Protein total decreased [Unknown]

NARRATIVE: CASE EVENT DATE: 2019
